FAERS Safety Report 8818637 (Version 1)
Quarter: 2012Q4

REPORT INFORMATION
  Report Type: 
  Country: US (occurrence: US)
  Receive Date: 20121001
  Receipt Date: 20121001
  Transmission Date: 20130627
  Serious: Yes (Death, Other)
  Sender: FDA-Public Use
  Company Number: US-ROCHE-1130100

PATIENT

DRUGS (2)
  1. HERCEPTIN [Suspect]
     Indication: BREAST CANCER
     Route: 065
     Dates: start: 19981012
  2. HERCEPTIN [Suspect]
     Route: 065

REACTIONS (4)
  - Death [Fatal]
  - Pleural effusion [Unknown]
  - Atelectasis [Unknown]
  - Rib fracture [Unknown]
